FAERS Safety Report 4592467-3 (Version None)
Quarter: 2005Q1

REPORT INFORMATION
  Report Type: 
  Country: None (occurrence: None)
  Receive Date: 20050222
  Receipt Date: 20050208
  Transmission Date: 20050727
  Serious: No
  Sender: FDA-Public Use
  Company Number: 2005UW01251

PATIENT
  Age: 79 Year
  Sex: Female
  Weight: 58.2872 kg

DRUGS (9)
  1. CRESTOR [Suspect]
     Indication: HYPERCHOLESTEROLAEMIA
     Dosage: 5 MG PO
     Route: 048
     Dates: start: 20040721, end: 20041116
  2. MEVACOR [Suspect]
     Dosage: 40 MG PO
     Route: 048
     Dates: start: 20030626, end: 20040301
  3. COREG [Suspect]
     Indication: VENTRICULAR DYSFUNCTION
     Dosage: 6.25 MG BID PO
     Route: 048
     Dates: start: 20030626
  4. COREG [Suspect]
     Indication: VENTRICULAR DYSFUNCTION
     Dosage: APPROXIMATELY 3.125 MG BID
  5. ASPIRIN [Concomitant]
  6. LASIX [Concomitant]
  7. POTASSIUM CHLORIDE [Concomitant]
  8. ALTACE [Concomitant]
  9. FOSINOPRIL SODIUM [Concomitant]

REACTIONS (22)
  - AGITATION [None]
  - AMNESIA [None]
  - BLADDER SPASM [None]
  - CARDIAC ANEURYSM [None]
  - CORONARY ARTERY DISEASE [None]
  - DISTURBANCE IN ATTENTION [None]
  - DIZZINESS [None]
  - FREQUENT BOWEL MOVEMENTS [None]
  - HYPERCHOLESTEROLAEMIA [None]
  - INSOMNIA [None]
  - INTESTINAL HYPERMOTILITY [None]
  - MYALGIA [None]
  - MYOCARDIAL INFARCTION [None]
  - NEUROPATHIC PAIN [None]
  - PAIN [None]
  - PALPITATIONS [None]
  - PARAESTHESIA [None]
  - POSITIVE CARDIAC INOTROPIC EFFECT [None]
  - SENSORY DISTURBANCE [None]
  - TREATMENT NONCOMPLIANCE [None]
  - URETHRAL SPASM [None]
  - VENTRICULAR DYSFUNCTION [None]
